FAERS Safety Report 8000664-X (Version None)
Quarter: 2011Q4

REPORT INFORMATION
  Report Type: 
  Country: None (occurrence: None)
  Receive Date: 20111216
  Receipt Date: 20111206
  Transmission Date: 20120403
  Serious: Yes (Other)
  Sender: FDA-Public Use
  Company Number: 2011SP057149

PATIENT
  Age: 67 Year
  Sex: Female
  Weight: 73 kg

DRUGS (2)
  1. ELOCON [Suspect]
     Indication: ALOPECIA AREATA
     Dosage: 3 GTT; TOP
     Route: 061
     Dates: start: 20111111, end: 20111116
  2. LEVOTHYROXINE SODIUM [Concomitant]

REACTIONS (4)
  - PRURITUS GENERALISED [None]
  - ERYTHEMA [None]
  - EYE SWELLING [None]
  - OCULAR HYPERAEMIA [None]
